FAERS Safety Report 4819332-8 (Version None)
Quarter: 2005Q4

REPORT INFORMATION
  Report Type: 
  Country: None (occurrence: None)
  Receive Date: 20051031
  Receipt Date: 20050810
  Transmission Date: 20060501
  Serious: No
  Sender: FDA-Public Use
  Company Number: 2005PV000999

PATIENT
  Age: 56 Year
  Sex: Male

DRUGS (4)
  1. SYMLIN [Suspect]
     Indication: DIABETES MELLITUS INSULIN-DEPENDENT
     Dosage: 30; 60; 45; 15 MCG; TID; SC
     Route: 058
     Dates: start: 20050814
  2. SYMLIN [Suspect]
     Indication: DIABETES MELLITUS INSULIN-DEPENDENT
     Dosage: 30; 60; 45; 15 MCG; TID; SC
     Route: 058
     Dates: start: 20050701
  3. SYMLIN [Suspect]
     Indication: DIABETES MELLITUS INSULIN-DEPENDENT
     Dosage: 30; 60; 45; 15 MCG; TID; SC
     Route: 058
     Dates: start: 20050801
  4. HUMALOG [Concomitant]

REACTIONS (3)
  - BLOOD GLUCOSE INCREASED [None]
  - HYPOGLYCAEMIA [None]
  - NAUSEA [None]
